APPROVED DRUG PRODUCT: ISOFLURANE
Active Ingredient: ISOFLURANE
Strength: 99.9%
Dosage Form/Route: LIQUID;INHALATION
Application: A216527 | Product #001 | TE Code: AN
Applicant: SHANDONG NEW TIME PHARMACEUTICAL CO LTD
Approved: Nov 4, 2025 | RLD: No | RS: No | Type: RX